FAERS Safety Report 6745929-4 (Version None)
Quarter: 2010Q2

REPORT INFORMATION
  Report Type: 
  Country: None (occurrence: None)
  Receive Date: 20100526
  Receipt Date: 20100520
  Transmission Date: 20101027
  Serious: Yes (Other)
  Sender: FDA-Public Use
  Company Number: DSA_43159_2010

PATIENT

DRUGS (1)
  1. ENALAPRIL MALEATE [Suspect]
     Indication: BLOOD PRESSURE
     Dosage: 10 MG QD
     Dates: end: 20100501

REACTIONS (3)
  - BLOOD PRESSURE INADEQUATELY CONTROLLED [None]
  - BLOOD PRESSURE INCREASED [None]
  - DRUG INEFFECTIVE [None]
